FAERS Safety Report 17809226 (Version 1)
Quarter: 2020Q2

REPORT INFORMATION
  Report Type: Spontaneous
  Country: RU (occurrence: RU)
  Receive Date: 20200520
  Receipt Date: 20200520
  Transmission Date: 20200714
  Serious: Yes (Other)
  Sender: FDA-Public Use
  Company Number: RU-SA-2018SA135432

PATIENT
  Age: 33 Year
  Sex: Female

DRUGS (1)
  1. TOUJEO [Suspect]
     Active Substance: INSULIN GLARGINE
     Indication: GESTATIONAL DIABETES
     Dosage: UNKNOWN
     Route: 058
     Dates: start: 20180508

REACTIONS (3)
  - Eye disorder [Unknown]
  - Exposure during pregnancy [Unknown]
  - Caesarean section [Unknown]
